FAERS Safety Report 8896403 (Version 4)
Quarter: 2012Q4

REPORT INFORMATION
  Report Type: Spontaneous
  Country: BR (occurrence: None)
  Receive Date: 20121102
  Receipt Date: 20121212
  Transmission Date: 20130627
  Serious: Yes (Other)
  Sender: FDA-Public Use
  Company Number: VAL_00953_2012

PATIENT
  Age: 78 Year
  Sex: Male
  Weight: 100 kg

DRUGS (2)
  1. LOTENSIN [Suspect]
     Indication: HYPERTENSION
     Dosage: (2 df qd oral), (10 mg qd oral)
     Route: 048
     Dates: start: 2012
  2. LOTENSIN [Suspect]
     Indication: HYPERTENSION
     Dosage: (10 mg qd oral) 
(20 years until ??/??/2012)
     Route: 048
     Dates: end: 2012

REACTIONS (6)
  - Drug effect decreased [None]
  - Blood pressure systolic increased [None]
  - Blood pressure fluctuation [None]
  - Diabetes mellitus [None]
  - Diabetes mellitus inadequate control [None]
  - Drug ineffective [None]
